FAERS Safety Report 17246837 (Version 3)
Quarter: 2020Q1

REPORT INFORMATION
  Report Type: Spontaneous
  Country: US (occurrence: US)
  Receive Date: 20200108
  Receipt Date: 20200226
  Transmission Date: 20200409
  Serious: No
  Sender: FDA-Public Use
  Company Number: US-PFIZER INC-2019514077

PATIENT
  Age: 43 Year
  Sex: Female

DRUGS (3)
  1. PROVERA [Concomitant]
     Active Substance: MEDROXYPROGESTERONE ACETATE
     Dosage: UNK, DAILY
     Dates: start: 199404
  2. PREMARIN [Suspect]
     Active Substance: ESTROGENS, CONJUGATED
     Indication: HORMONE REPLACEMENT THERAPY
     Dosage: UNK, (145 UNIT NOT PROVIDED)1X/DAY
     Dates: start: 199404
  3. VALIUM [Concomitant]
     Active Substance: DIAZEPAM
     Dosage: 1 MG, UNK
     Dates: start: 1980

REACTIONS (1)
  - Essential tremor [Not Recovered/Not Resolved]

NARRATIVE: CASE EVENT DATE: 199408
